FAERS Safety Report 13134559 (Version 2)
Quarter: 2017Q1

REPORT INFORMATION
  Report Type: Spontaneous
  Country: FR (occurrence: FR)
  Receive Date: 20170120
  Receipt Date: 20170214
  Transmission Date: 20170428
  Serious: Yes (Hospitalization)
  Sender: FDA-Public Use
  Company Number: FR-PFIZER INC-2017021022

PATIENT
  Age: 16 Month
  Sex: Female
  Weight: 12 kg

DRUGS (2)
  1. ADVILMED ENFANTS ET NOURRISSONS [Suspect]
     Active Substance: IBUPROFEN
     Indication: EAR INFECTION
     Dosage: 1 DF, 3X/DAY
     Route: 048
     Dates: start: 20161017, end: 20161020
  2. DOLIPRANE [Concomitant]
     Active Substance: ACETAMINOPHEN
     Indication: EAR INFECTION
     Route: 048

REACTIONS (4)
  - Immune system disorder [Recovered/Resolved]
  - Product use issue [Unknown]
  - Condition aggravated [Recovered/Resolved]
  - Arthritis bacterial [Recovered/Resolved]

NARRATIVE: CASE EVENT DATE: 20161017
